FAERS Safety Report 5840500-0 (Version None)
Quarter: 2008Q3

REPORT INFORMATION
  Report Type: 
  Country: None (occurrence: None)
  Receive Date: 20080807
  Receipt Date: 20080807
  Transmission Date: 20090109
  Serious: Yes (Death)
  Sender: FDA-Public Use
  Company Number: None

PATIENT
  Age: 81 Year
  Sex: Male
  Weight: 67.586 kg

DRUGS (1)
  1. LIPITOR [Suspect]
     Indication: BLOOD CHOLESTEROL INCREASED
     Dosage: PO
     Route: 048

REACTIONS (6)
  - DEHYDRATION [None]
  - MALAISE [None]
  - PAIN IN EXTREMITY [None]
  - RENAL FAILURE [None]
  - RESPIRATORY TRACT INFECTION [None]
  - RHABDOMYOLYSIS [None]
